FAERS Safety Report 10167987 (Version 1)
Quarter: 2014Q2

REPORT INFORMATION
  Report Type: Report from Study
  Country: DE (occurrence: DE)
  Receive Date: 20140512
  Receipt Date: 20140512
  Transmission Date: 20141212
  Serious: Yes (Hospitalization)
  Sender: FDA-Public Use
  Company Number: DE-GLAXOSMITHKLINE-B0991784A

PATIENT
  Age: 73 Year
  Sex: Male
  Weight: 96 kg

DRUGS (1)
  1. PAZOPANIB [Suspect]
     Indication: SARCOMA
     Dosage: 800MG PER DAY
     Dates: start: 20131030, end: 20140326

REACTIONS (2)
  - General physical health deterioration [Recovered/Resolved]
  - Infection [Recovered/Resolved]
